FAERS Safety Report 19035403 (Version 2)
Quarter: 2021Q2

REPORT INFORMATION
  Report Type: Other
  Country: US (occurrence: US)
  Receive Date: 20210320
  Receipt Date: 20210621
  Transmission Date: 20210717
  Serious: No
  Sender: FDA-Public Use
  Company Number: US-ACORDA-ACO_167133_2020

PATIENT
  Sex: Female

DRUGS (1)
  1. INBRIJA [Suspect]
     Active Substance: LEVODOPA
     Indication: PARKINSON^S DISEASE
     Dosage: (84 MG AS NEEDED)  NOT TO EXCEED 5 DOSES AS DIRECTED
     Dates: start: 20201210

REACTIONS (6)
  - Device issue [Unknown]
  - Device occlusion [Unknown]
  - Product residue present [Unknown]
  - Incorrect dose administered [Unknown]
  - Ill-defined disorder [Unknown]
  - Device use issue [Unknown]
